FAERS Safety Report 20705095 (Version 1)
Quarter: 2022Q2

REPORT INFORMATION
  Report Type: Spontaneous
  Country: JP (occurrence: JP)
  Receive Date: 20220413
  Receipt Date: 20220413
  Transmission Date: 20220721
  Serious: Yes (Other)
  Sender: FDA-Public Use
  Company Number: JP-PFIZER INC-202200529357

PATIENT
  Age: 11 Year
  Sex: Male
  Weight: 22.9 kg

DRUGS (10)
  1. DEXMEDETOMIDINE HYDROCHLORIDE [Suspect]
     Active Substance: DEXMEDETOMIDINE HYDROCHLORIDE
     Indication: Sedation
  2. MIDAZOLAM [Suspect]
     Active Substance: MIDAZOLAM
     Indication: Sedation
  3. FENTANYL [Suspect]
     Active Substance: FENTANYL
     Indication: Sedation
  4. CHLORAL HYDRATE [Suspect]
     Active Substance: CHLORAL HYDRATE
     Indication: Sedation
  5. KETAMINE [Suspect]
     Active Substance: KETAMINE
     Indication: Sedation
  6. MORPHINE [Suspect]
     Active Substance: MORPHINE
     Indication: Sedation
  7. DIAZEPAM [Suspect]
     Active Substance: DIAZEPAM
     Indication: Sedation
     Route: 048
  8. THIOPENTAL [Suspect]
     Active Substance: THIOPENTAL
     Indication: Sedation
  9. TRICLOFOS SODIUM [Suspect]
     Active Substance: TRICLOFOS SODIUM
     Route: 048
  10. CLONIDINE [Concomitant]
     Active Substance: CLONIDINE
     Route: 048

REACTIONS (1)
  - Withdrawal syndrome [Unknown]
